FAERS Safety Report 10250119 (Version 1)
Quarter: 2014Q2

REPORT INFORMATION
  Report Type: Spontaneous
  Country: US (occurrence: US)
  Receive Date: 20140620
  Receipt Date: 20140620
  Transmission Date: 20141212
  Serious: No
  Sender: FDA-Public Use
  Company Number: US-BRISTOL-MYERS SQUIBB COMPANY-20673398

PATIENT
  Age: 70 Year
  Sex: Female

DRUGS (6)
  1. ELIQUIS [Suspect]
     Dates: start: 2014
  2. FLECAINIDE [Concomitant]
  3. SPIRIVA [Concomitant]
  4. DILTIAZEM HCL [Concomitant]
  5. PRILOSEC [Concomitant]
  6. LATANOPROST [Concomitant]

REACTIONS (1)
  - Drug dose omission [Unknown]
